FAERS Safety Report 5696368-9 (Version None)
Quarter: 2008Q2

REPORT INFORMATION
  Report Type: 
  Country: None (occurrence: None)
  Receive Date: 20080408
  Receipt Date: 20080328
  Transmission Date: 20081010
  Serious: Yes (Other)
  Sender: FDA-Public Use
  Company Number: KR-PFIZER INC-2008028328

PATIENT
  Age: 65 Year
  Sex: Male

DRUGS (1)
  1. VIAGRA [Suspect]
     Dosage: DAILY DOSE:100MG
     Route: 048

REACTIONS (2)
  - RETINAL HAEMORRHAGE [None]
  - ROAD TRAFFIC ACCIDENT [None]
